FAERS Safety Report 17850554 (Version 1)
Quarter: 2020Q2

REPORT INFORMATION
  Report Type: Spontaneous
  Country: US (occurrence: US)
  Receive Date: 20200602
  Receipt Date: 20200602
  Transmission Date: 20200714
  Serious: Yes (Life-Threatening, Disabling)
  Sender: FDA-Public Use
  Company Number: None

PATIENT
  Age: 56 Year
  Sex: Female
  Weight: 69.3 kg

DRUGS (9)
  1. KAL MAGNESIUM GLYCINATE [Concomitant]
  2. NP THYROID [Suspect]
     Active Substance: LEVOTHYROXINE\LIOTHYRONINE
     Indication: SECONDARY HYPOTHYROIDISM
     Dosage: ?          QUANTITY:1 TABLET(S);?
     Route: 048
     Dates: start: 20190731, end: 20190928
  3. ARMOUR THYROID [Concomitant]
     Active Substance: THYROID, PORCINE
  4. NP THYROID [Suspect]
     Active Substance: LEVOTHYROXINE\LIOTHYRONINE
     Indication: SECONDARY HYPOTHYROIDISM
     Dosage: ?          QUANTITY:1 TABLET(S);?
     Route: 048
     Dates: start: 20190731, end: 20190928
  5. IRON [Concomitant]
     Active Substance: IRON
  6. MULTIVITAMIN (VITAFUSION GUMMY) [Concomitant]
  7. VITAMIN C [Concomitant]
     Active Substance: ASCORBIC ACID
  8. VITAMIN D3 [Concomitant]
     Active Substance: CHOLECALCIFEROL
  9. VADADUSTAT. [Concomitant]
     Active Substance: VADADUSTAT

REACTIONS (9)
  - Neck pain [None]
  - Eye pain [None]
  - Drug intolerance [None]
  - Ear pain [None]
  - Product formulation issue [None]
  - Adverse drug reaction [None]
  - Abdominal pain upper [None]
  - Headache [None]
  - Manufacturing issue [None]

NARRATIVE: CASE EVENT DATE: 20190826
